FAERS Safety Report 18516231 (Version 1)
Quarter: 2020Q4

REPORT INFORMATION
  Report Type: Spontaneous
  Country: US (occurrence: US)
  Receive Date: 20201118
  Receipt Date: 20201118
  Transmission Date: 20210114
  Serious: Yes (Death)
  Sender: FDA-Public Use
  Company Number: None

PATIENT
  Age: 87 Year
  Sex: Female
  Weight: 49.5 kg

DRUGS (5)
  1. CLONIDINE. [Concomitant]
     Active Substance: CLONIDINE
  2. NP THYROID [Suspect]
     Active Substance: LEVOTHYROXINE\LIOTHYRONINE
     Indication: HYPERTHYROIDISM
     Route: 048
  3. PREDNISONE. [Concomitant]
     Active Substance: PREDNISONE
  4. WARFARIN [Concomitant]
     Active Substance: WARFARIN
  5. DILITAZEM ER [Concomitant]

REACTIONS (4)
  - Recalled product administered [None]
  - Myocardial infarction [None]
  - Product measured potency issue [None]
  - Sudden death [None]

NARRATIVE: CASE EVENT DATE: 20200519
